FAERS Safety Report 10075512 (Version 1)
Quarter: 2014Q2

REPORT INFORMATION
  Report Type: Report from Study
  Country: CA (occurrence: CA)
  Receive Date: 20140414
  Receipt Date: 20140414
  Transmission Date: 20141212
  Serious: Yes (Hospitalization)
  Sender: FDA-Public Use
  Company Number: CA-JNJFOC-20140406437

PATIENT
  Sex: Male
  Weight: 103.42 kg

DRUGS (2)
  1. REMICADE [Suspect]
     Indication: COLITIS ULCERATIVE
     Route: 042
     Dates: start: 2013
  2. REMICADE [Suspect]
     Indication: COLITIS ULCERATIVE
     Route: 042
     Dates: end: 2013

REACTIONS (3)
  - Loss of consciousness [Recovering/Resolving]
  - Anaemia [Not Recovered/Not Resolved]
  - Drug ineffective [Unknown]
